FAERS Safety Report 5348992-0 (Version None)
Quarter: 2007Q2

REPORT INFORMATION
  Report Type: 
  Country: None (occurrence: None)
  Receive Date: 20070516
  Receipt Date: 20070214
  Transmission Date: 20071010
  Serious: Yes (Hospitalization)
  Sender: FDA-Public Use
  Company Number: WAES 0509USA01103

PATIENT
  Age: 32 Year
  Sex: Male

DRUGS (3)
  1. CRIXIVAN [Suspect]
     Indication: PROPHYLAXIS AGAINST HIV INFECTION
     Dosage: PO
     Route: 048
  2. EPIVIR [Concomitant]
  3. RITONAVIR [Concomitant]

REACTIONS (2)
  - DIABETES MELLITUS [None]
  - THYROID DISORDER [None]
